FAERS Safety Report 7988251-0 (Version None)
Quarter: 2011Q4

REPORT INFORMATION
  Report Type: 
  Country: None (occurrence: None)
  Receive Date: 20111216
  Receipt Date: 20111114
  Transmission Date: 20120403
  Serious: No
  Sender: FDA-Public Use
  Company Number: US-ABBOTT-11P-163-0875589-00

PATIENT
  Sex: Female
  Weight: 90.8 kg

DRUGS (3)
  1. PROMETRIUM [Suspect]
     Indication: MENOPAUSAL SYMPTOMS
     Dosage: AT NIGHT. SKIPPED 3 MONTHS IN 2011
     Route: 048
  2. ESTRADIOL [Concomitant]
     Indication: MENOPAUSAL SYMPTOMS
  3. PROMETRIUM [Suspect]
     Indication: INSOMNIA

REACTIONS (8)
  - HAIR GROWTH ABNORMAL [None]
  - DRUG DOSE OMISSION [None]
  - DRY SKIN [None]
  - THERAPEUTIC RESPONSE UNEXPECTED [None]
  - WEIGHT INCREASED [None]
  - SKIN DISORDER [None]
  - SLEEP DISORDER [None]
  - INSOMNIA [None]
